FAERS Safety Report 4268706-5 (Version None)
Quarter: 2004Q1

REPORT INFORMATION
  Report Type: 
  Country: None (occurrence: None)
  Receive Date: 20040109
  Receipt Date: 20040109
  Transmission Date: 20041129
  Serious: Yes (Death)
  Sender: FDA-Public Use
  Company Number: None

PATIENT
  Age: 66 Year
  Sex: Male
  Weight: 81.6475 kg

DRUGS (2)
  1. TEMODAR [Suspect]
     Indication: MALIGNANT MELANOMA
     Dosage: 150 MGM PO QD X 43 DAYS
     Route: 048
     Dates: start: 20031021, end: 20031211
  2. IV PS-341 [Suspect]
     Indication: MALIGNANT MELANOMA
     Dosage: 2.6 MGM ON DAYS 1,4,8,11,22,25,29,32,43,46,50, AND 53
     Route: 042

REACTIONS (7)
  - DIFFICULTY IN WALKING [None]
  - DISEASE PROGRESSION [None]
  - FAECAL INCONTINENCE [None]
  - METASTATIC MALIGNANT MELANOMA [None]
  - RESPIRATORY DISORDER [None]
  - SOMNOLENCE [None]
  - URINARY INCONTINENCE [None]
